FAERS Safety Report 7605971-8 (Version None)
Quarter: 2011Q3

REPORT INFORMATION
  Report Type: 
  Country: None (occurrence: None)
  Receive Date: 20110713
  Receipt Date: 20110630
  Transmission Date: 20111222
  Serious: Yes (Other)
  Sender: FDA-Public Use
  Company Number: PHHY2011US18979

PATIENT
  Sex: Female

DRUGS (4)
  1. RECLAST [Suspect]
     Dosage: 5 MG/100ML
     Route: 042
     Dates: start: 20110201
  2. ZANTAC [Concomitant]
     Dosage: UNK UKN, UNK
  3. PRILOSEC [Concomitant]
     Dosage: UNK UKN, UNK
  4. METOPROLOL SUCCINATE [Concomitant]
     Dosage: UNK UKN, UNK

REACTIONS (7)
  - MASS [None]
  - PERIARTHRITIS [None]
  - MUSCULOSKELETAL PAIN [None]
  - RASH MACULAR [None]
  - BLOOD CHOLESTEROL INCREASED [None]
  - PAIN IN EXTREMITY [None]
  - PRURITUS [None]
